FAERS Safety Report 19217278 (Version 1)
Quarter: 2021Q2

REPORT INFORMATION
  Report Type: Spontaneous
  Country: US (occurrence: US)
  Receive Date: 20210505
  Receipt Date: 20210505
  Transmission Date: 20210717
  Serious: No
  Sender: FDA-Public Use
  Company Number: US-ELI_LILLY_AND_COMPANY-US202104007594

PATIENT
  Sex: Female

DRUGS (6)
  1. HUMALOG [Suspect]
     Active Substance: INSULIN LISPRO
     Indication: TYPE 2 DIABETES MELLITUS
     Dosage: 18 U, TID
     Route: 058
     Dates: start: 2011
  2. HUMALOG [Suspect]
     Active Substance: INSULIN LISPRO
     Dosage: 18 U, TID
     Route: 058
  3. HUMALOG [Suspect]
     Active Substance: INSULIN LISPRO
     Indication: TYPE 2 DIABETES MELLITUS
     Dosage: 18 U, TID
     Route: 058
     Dates: start: 2011
  4. HUMALOG [Suspect]
     Active Substance: INSULIN LISPRO
     Dosage: 18 U, TID
     Route: 058
  5. PREDNISONE. [Suspect]
     Active Substance: PREDNISONE
     Indication: ARTHRITIS
     Dosage: 4 MG, TID
     Route: 065
  6. LANTUS [Concomitant]
     Active Substance: INSULIN GLARGINE
     Indication: TYPE 2 DIABETES MELLITUS
     Dosage: 65 U

REACTIONS (2)
  - Arthritis [Unknown]
  - Blood glucose increased [Unknown]
